FAERS Safety Report 23198337 (Version 20)
Quarter: 2025Q2

REPORT INFORMATION
  Report Type: Report from Study
  Country: DE (occurrence: DE)
  Receive Date: 20231117
  Receipt Date: 20250619
  Transmission Date: 20250717
  Serious: Yes (Death, Hospitalization)
  Sender: SANOFI AVENTIS
  Company Number: DE-SA-SAC20230601000340

PATIENT
  Age: 56 Year
  Sex: Male
  Weight: 88.9 kg

DRUGS (53)
  1. ISATUXIMAB [Suspect]
     Active Substance: ISATUXIMAB
     Indication: Plasma cell myeloma refractory
     Dosage: 10 MG/KG, QW
     Dates: start: 20230418, end: 20230509
  2. ISATUXIMAB [Suspect]
     Active Substance: ISATUXIMAB
     Dosage: 10 MG/KG, QW
     Dates: start: 20230515, end: 20230522
  3. ISATUXIMAB [Suspect]
     Active Substance: ISATUXIMAB
     Dosage: 10 MG/KG, QW
     Dates: start: 20230613, end: 20230704
  4. ISATUXIMAB [Suspect]
     Active Substance: ISATUXIMAB
     Dosage: 10 MG/ KG
     Route: 065
     Dates: start: 20230725, end: 20230912
  5. ISATUXIMAB [Suspect]
     Active Substance: ISATUXIMAB
     Dosage: 10 MG/ KG
     Dates: start: 20230724, end: 20230724
  6. ISATUXIMAB [Suspect]
     Active Substance: ISATUXIMAB
     Dosage: 10 MG/ KG
     Dates: start: 20230913, end: 20231010
  7. DEXAMETHASONE [Suspect]
     Active Substance: DEXAMETHASONE
     Indication: Plasma cell myeloma refractory
     Dosage: 20 MG, QW
     Route: 065
     Dates: start: 20230418, end: 20230509
  8. DEXAMETHASONE [Suspect]
     Active Substance: DEXAMETHASONE
     Dosage: 20 MG, QW
     Route: 065
     Dates: start: 20230515, end: 20230523
  9. DEXAMETHASONE [Suspect]
     Active Substance: DEXAMETHASONE
     Dosage: 20 MG, QW
     Route: 065
     Dates: start: 20230613, end: 20230704
  10. DEXAMETHASONE [Suspect]
     Active Substance: DEXAMETHASONE
     Dosage: 20 MG, QW
     Dates: start: 20230711, end: 20230724
  11. DEXAMETHASONE [Suspect]
     Active Substance: DEXAMETHASONE
     Dosage: 10 MG, BIW
     Dates: start: 20230913, end: 20231010
  12. CARFILZOMIB [Suspect]
     Active Substance: CARFILZOMIB
     Indication: Plasma cell myeloma refractory
     Route: 065
     Dates: start: 20230418, end: 20230419
  13. CARFILZOMIB [Suspect]
     Active Substance: CARFILZOMIB
     Route: 065
     Dates: start: 20230515, end: 20230516
  14. CARFILZOMIB [Suspect]
     Active Substance: CARFILZOMIB
     Route: 065
     Dates: start: 20230420, end: 20230509
  15. CARFILZOMIB [Suspect]
     Active Substance: CARFILZOMIB
     Route: 065
     Dates: start: 20230517, end: 20230523
  16. CARFILZOMIB [Suspect]
     Active Substance: CARFILZOMIB
     Route: 065
     Dates: start: 20230613, end: 20230614
  17. CARFILZOMIB [Suspect]
     Active Substance: CARFILZOMIB
     Route: 065
     Dates: start: 20230615, end: 20230704
  18. CARFILZOMIB [Suspect]
     Active Substance: CARFILZOMIB
     Dates: start: 20230711, end: 20230717
  19. CARFILZOMIB [Suspect]
     Active Substance: CARFILZOMIB
     Dates: start: 20230718, end: 20230724
  20. CARFILZOMIB [Suspect]
     Active Substance: CARFILZOMIB
     Dates: start: 20230724, end: 20230724
  21. CARFILZOMIB [Suspect]
     Active Substance: CARFILZOMIB
     Dates: start: 20230913, end: 20230919
  22. CARFILZOMIB [Suspect]
     Active Substance: CARFILZOMIB
     Dates: start: 20230920, end: 20231010
  23. ASPIRIN [Concomitant]
     Active Substance: ASPIRIN
     Dosage: UNK, QD
     Dates: start: 20201210
  24. COTRIMOXAZOLE [Concomitant]
     Active Substance: SULFAMETHOXAZOLE\TRIMETHOPRIM
     Indication: Prophylaxis
     Dates: start: 20230419
  25. VALACYCLOVIR [Concomitant]
     Active Substance: VALACYCLOVIR HYDROCHLORIDE
     Indication: Prophylaxis
     Dates: start: 20230418
  26. ALBUTEROL [Concomitant]
     Active Substance: ALBUTEROL
     Indication: Chronic obstructive pulmonary disease
     Dates: start: 20230110
  27. FENTANYL [Concomitant]
     Active Substance: FENTANYL
     Indication: Pain
     Dates: start: 20230414
  28. FENOTEROL HYDROBROMIDE\IPRATROPIUM BROMIDE [Concomitant]
     Active Substance: FENOTEROL HYDROBROMIDE\IPRATROPIUM BROMIDE
     Indication: Chronic obstructive pulmonary disease
     Dates: start: 20230115
  29. TRELEGY ELLIPTA [Concomitant]
     Active Substance: FLUTICASONE FUROATE\UMECLIDINIUM BROMIDE\VILANTEROL TRIFENATATE
     Indication: Chronic obstructive pulmonary disease
     Dates: start: 20230420
  30. ACETAMINOPHEN [Concomitant]
     Active Substance: ACETAMINOPHEN
     Indication: Pain
     Dates: start: 20230413, end: 20230420
  31. ACETAMINOPHEN [Concomitant]
     Active Substance: ACETAMINOPHEN
     Dates: start: 20230824, end: 20230824
  32. METRONIDAZOLE [Concomitant]
     Active Substance: METRONIDAZOLE
     Dates: start: 20230819, end: 20230827
  33. LEVOFLOXACIN [Concomitant]
     Active Substance: LEVOFLOXACIN
     Dates: start: 20230828, end: 20230904
  34. METOCLOPRAMIDE HYDROCHLORIDE [Concomitant]
     Active Substance: METOCLOPRAMIDE HYDROCHLORIDE
     Dates: start: 20230810, end: 20231012
  35. ENOXAPARIN SODIUM [Concomitant]
     Active Substance: ENOXAPARIN SODIUM
     Indication: Thrombosis prophylaxis
     Dates: start: 20230414, end: 20230420
  36. ENOXAPARIN SODIUM [Concomitant]
     Active Substance: ENOXAPARIN SODIUM
     Dates: start: 20230803, end: 20230830
  37. PLATELETS [Concomitant]
     Active Substance: HUMAN PLATELET, ALLOGENIC
     Dates: start: 20230728, end: 20230728
  38. HUMAN RED BLOOD CELL [Concomitant]
     Active Substance: HUMAN RED BLOOD CELL
     Dates: start: 20230727, end: 20230818
  39. AMPHO-MORONAL [Concomitant]
     Active Substance: AMPHOTERICIN B
     Indication: Prophylaxis
     Dates: start: 20230725, end: 20230820
  40. AMPHO-MORONAL [Concomitant]
     Active Substance: AMPHOTERICIN B
     Dates: start: 20231008
  41. NOXAFIL [Concomitant]
     Active Substance: POSACONAZOLE
     Dates: start: 20230727, end: 20230828
  42. PANTOPRAZOLE SODIUM [Concomitant]
     Active Substance: PANTOPRAZOLE SODIUM
     Indication: Prophylaxis
     Dates: start: 20230804, end: 20230809
  43. CLARITHROMYCIN [Concomitant]
     Active Substance: CLARITHROMYCIN
     Indication: Atypical pneumonia
     Dates: start: 20230413, end: 20230416
  44. VOMEX [Concomitant]
     Dates: start: 20230913, end: 20231012
  45. LASIX [Concomitant]
     Active Substance: FUROSEMIDE
     Dates: start: 20231014, end: 20231017
  46. LASIX [Concomitant]
     Active Substance: FUROSEMIDE
     Dates: start: 20231224
  47. HEMODIALYSIS SOLUTION [Concomitant]
     Dates: start: 20231225
  48. RASBURICASE [Concomitant]
     Active Substance: RASBURICASE
     Dates: start: 20201221
  49. RESONIUM [Concomitant]
     Active Substance: SODIUM POLYSTYRENE SULFONATE
     Dates: start: 20231228
  50. AMPICILLIN SODIUM\SULBACTAM SODIUM [Concomitant]
     Active Substance: AMPICILLIN SODIUM\SULBACTAM SODIUM
     Dates: start: 20231231, end: 20240104
  51. VITAMIN D3 [Concomitant]
     Active Substance: CHOLECALCIFEROL
     Dates: start: 20231226, end: 20240129
  52. CODEINE [Concomitant]
     Active Substance: CODEINE
     Dates: start: 20231220, end: 20240129
  53. DEXA GENTAMICIN [DEXAMETHASONE;GENTAMICIN SULFATE] [Concomitant]
     Dates: start: 20240115, end: 20240125

REACTIONS (18)
  - Disease progression [Fatal]
  - Acute kidney injury [Fatal]
  - Bronchitis [Recovered/Resolved]
  - Pneumonia [Recovered/Resolved]
  - Infection [Recovered/Resolved]
  - Lymphocyte count decreased [Recovered/Resolved]
  - Laryngeal inflammation [Recovered/Resolved]
  - Dyspnoea [Recovered/Resolved]
  - Conjunctivitis [Recovered/Resolved]
  - Klebsiella bacteraemia [Not Recovered/Not Resolved]
  - Escherichia urinary tract infection [Not Recovered/Not Resolved]
  - Bronchitis [Recovering/Resolving]
  - Peripheral sensory neuropathy [Not Recovered/Not Resolved]
  - Anaemia [Recovered/Resolved with Sequelae]
  - Platelet count decreased [Recovered/Resolved]
  - Platelet count decreased [Recovered/Resolved with Sequelae]
  - Hypoxia [Not Recovered/Not Resolved]
  - White blood cell count decreased [Not Recovered/Not Resolved]

NARRATIVE: CASE EVENT DATE: 20230418
